FAERS Safety Report 9521880 (Version 1)
Quarter: 2013Q3

REPORT INFORMATION
  Report Type: Report from Study
  Country: US (occurrence: US)
  Receive Date: 20130913
  Receipt Date: 20130913
  Transmission Date: 20140515
  Serious: Yes (Life-Threatening)
  Sender: FDA-Public Use
  Company Number: US-MERCK-1309USA004281

PATIENT
  Age: 11 Year
  Sex: Male

DRUGS (6)
  1. VORINOSTAT [Suspect]
     Indication: MEDULLOBLASTOMA
     Dosage: UNK
     Route: 048
     Dates: start: 20130729
  2. ETOPOSIDE [Suspect]
     Indication: MEDULLOBLASTOMA
     Dosage: UNK
     Route: 048
     Dates: start: 20130729
  3. DEXAMETHASONE [Concomitant]
     Dosage: UNK
     Route: 048
     Dates: start: 20130522
  4. LANSOPRAZOLE [Concomitant]
     Dosage: 10 MG, UNK
     Dates: start: 20130719
  5. NYSTATIN [Concomitant]
     Dosage: UNK
     Dates: start: 20130522
  6. SULFAMETHOXAZOLE (+) TRIMETHOPRIM [Concomitant]
     Dosage: UNK
     Dates: start: 20120516

REACTIONS (2)
  - Neutrophil count decreased [Recovered/Resolved]
  - Neutrophil count decreased [Unknown]
